FAERS Safety Report 6962450-9 (Version None)
Quarter: 2010Q3

REPORT INFORMATION
  Report Type: 
  Country: None (occurrence: None)
  Receive Date: 20100902
  Receipt Date: 20100823
  Transmission Date: 20110219
  Serious: Yes (Hospitalization)
  Sender: FDA-Public Use
  Company Number: FR-WYE-H17061710

PATIENT
  Age: 54 Year
  Sex: Male

DRUGS (10)
  1. SIROLIMUS [Suspect]
     Indication: PROPHYLAXIS AGAINST TRANSPLANT REJECTION
     Dates: start: 20080901, end: 20080101
  2. MYCOPHENOLATE MOFETIL [Concomitant]
     Indication: PROPHYLAXIS AGAINST TRANSPLANT REJECTION
     Dosage: UNKNOWN DOSE REDUCED IN OCT 2007; DOSE WAS 500 MG BID AT TIME OF EVENT
     Dates: start: 20070801
  3. OMEPRAZOLE [Concomitant]
  4. EPOETIN BETA [Concomitant]
  5. IRBESARTAN [Concomitant]
  6. HYDROCHLOROTHIAZIDE [Concomitant]
  7. SULFAMETHOXAZOLE AND TRIMETHOPRIM [Concomitant]
  8. ATENOLOL [Concomitant]
  9. PREDNISOLONE [Concomitant]
  10. ALFUZOSIN [Concomitant]

REACTIONS (1)
  - HEPATITIS [None]
